FAERS Safety Report 7549765-0 (Version None)
Quarter: 2011Q2

REPORT INFORMATION
  Report Type: 
  Country: None (occurrence: None)
  Receive Date: 20110615
  Receipt Date: 20080103
  Transmission Date: 20111010
  Serious: Yes (Death, Hospitalization)
  Sender: FDA-Public Use
  Company Number: PHHY2007CA00905

PATIENT
  Sex: Female

DRUGS (2)
  1. SANDOSTATIN [Suspect]
     Dosage: 20 MG, QMO
     Route: 030
  2. CHEMOTHERAPEUTICS NOS [Concomitant]

REACTIONS (6)
  - ABDOMINAL PAIN [None]
  - VOMITING [None]
  - EATING DISORDER [None]
  - ILEUS [None]
  - DEATH [None]
  - INTESTINAL STENOSIS [None]
